FAERS Safety Report 7208569-9 (Version None)
Quarter: 2010Q4

REPORT INFORMATION
  Report Type: 
  Country: None (occurrence: None)
  Receive Date: 20101222
  Receipt Date: 20101215
  Transmission Date: 20110411
  Serious: Yes (Hospitalization)
  Sender: FDA-Public Use
  Company Number: 2010SP064946

PATIENT
  Age: 60 Year
  Sex: Male

DRUGS (3)
  1. RIBAVIRIN [Suspect]
     Indication: HEPATITIS C
  2. PEG-INTERFERON (PEGINTERERON ALFA-2B /01543001/) [Suspect]
     Indication: HEPATITIS C
  3. PEGASYS [Suspect]
     Indication: HEPATITIS C
     Dosage: 90 MCG; QOW
     Dates: end: 20090224

REACTIONS (2)
  - AUTOIMMUNE HEPATITIS [None]
  - DRUG INEFFECTIVE [None]
